FAERS Safety Report 16216412 (Version 2)
Quarter: 2019Q2

REPORT INFORMATION
  Report Type: Report from Study
  Country: US (occurrence: US)
  Receive Date: 20190419
  Receipt Date: 20190503
  Transmission Date: 20190711
  Serious: Yes (Hospitalization, Other)
  Sender: FDA-Public Use
  Company Number: US-BRISTOL-MYERS SQUIBB COMPANY-BMS-2019-038687

PATIENT
  Age: 54 Year
  Sex: Female

DRUGS (3)
  1. NIVOLUMAB [Suspect]
     Active Substance: NIVOLUMAB
     Indication: ACUTE MYELOID LEUKAEMIA
     Dosage: 3 MILLIGRAM/KILOGRAM
     Route: 065
     Dates: start: 20190327, end: 20190327
  2. IPILIMUMAB [Suspect]
     Active Substance: IPILIMUMAB
     Indication: ACUTE MYELOID LEUKAEMIA
     Dosage: 1 MILLIGRAM/KILOGRAM
     Route: 065
     Dates: end: 20190107
  3. 5-AZACYTIDINE [Suspect]
     Active Substance: AZACITIDINE
     Indication: ACUTE MYELOID LEUKAEMIA
     Dosage: 75 MILLIGRAM/SQ. METER
     Route: 065
     Dates: end: 20190320

REACTIONS (2)
  - Eye infection [Not Recovered/Not Resolved]
  - Febrile neutropenia [Unknown]

NARRATIVE: CASE EVENT DATE: 20190409
